FAERS Safety Report 24964449 (Version 1)
Quarter: 2025Q1

REPORT INFORMATION
  Report Type: Other
  Country: NP (occurrence: NP)
  Receive Date: 20250213
  Receipt Date: 20250213
  Transmission Date: 20250409
  Serious: Yes (Hospitalization, Other)
  Sender: ANI
  Company Number: NP-ANIPHARMA-015559

PATIENT
  Age: 25 Year
  Sex: Female

DRUGS (3)
  1. CYCLOPHOSPHAMIDE [Suspect]
     Active Substance: CYCLOPHOSPHAMIDE
     Indication: Glomerulonephritis
     Route: 042
  2. METHYLPREDNISOLONE [Concomitant]
     Active Substance: METHYLPREDNISOLONE
     Indication: Glomerulonephritis
     Route: 042
  3. PREDNISOLONE [Concomitant]
     Active Substance: PREDNISOLONE
     Indication: Glomerulonephritis
     Route: 048

REACTIONS (3)
  - Seizure [Unknown]
  - Subdural haematoma [Unknown]
  - Cerebral haemorrhage [Unknown]
